FAERS Safety Report 16749256 (Version 1)
Quarter: 2019Q3

REPORT INFORMATION
  Report Type: Report from Study
  Country: GB (occurrence: EC)
  Receive Date: 20190828
  Receipt Date: 20190828
  Transmission Date: 20191005
  Serious: Yes (Other)
  Sender: FDA-Public Use
  Company Number: EC-ASTELLAS-2019US034128

PATIENT
  Sex: Female

DRUGS (1)
  1. ERLOTINIB [Suspect]
     Active Substance: ERLOTINIB
     Indication: PRODUCT USED FOR UNKNOWN INDICATION
     Dosage: UNK, UNKNOWN FREQ.
     Route: 048

REACTIONS (6)
  - Perforated ulcer [Unknown]
  - Pruritus [Unknown]
  - Infection [Unknown]
  - Pruritus generalised [Unknown]
  - Nasal congestion [Unknown]
  - Nasal obstruction [Unknown]
